FAERS Safety Report 25272961 (Version 1)
Quarter: 2025Q2

REPORT INFORMATION
  Report Type: Other
  Country: ES (occurrence: ES)
  Receive Date: 20250506
  Receipt Date: 20250506
  Transmission Date: 20250717
  Serious: Yes (Other)
  Sender: STRIDES
  Company Number: ES-AUROBINDO-AUR-APL-2023-036032

PATIENT
  Age: 62 Year
  Sex: Female
  Weight: 168 kg

DRUGS (44)
  1. ALPRAZOLAM [Interacting]
     Active Substance: ALPRAZOLAM
     Indication: Personality disorder
     Route: 065
  2. ALPRAZOLAM [Interacting]
     Active Substance: ALPRAZOLAM
     Route: 065
  3. GABAPENTIN [Interacting]
     Active Substance: GABAPENTIN
     Indication: Arthralgia
     Route: 065
  4. GABAPENTIN [Interacting]
     Active Substance: GABAPENTIN
     Route: 065
  5. QUETIAPINE [Interacting]
     Active Substance: QUETIAPINE
     Indication: Personality disorder
     Route: 065
  6. KETAZOLAM [Interacting]
     Active Substance: KETAZOLAM
     Indication: Hallucination
     Route: 065
  7. KETAZOLAM [Interacting]
     Active Substance: KETAZOLAM
     Indication: Personality disorder
     Route: 065
  8. LORMETAZEPAM [Interacting]
     Active Substance: LORMETAZEPAM
     Indication: Product used for unknown indication
     Route: 065
  9. LORMETAZEPAM [Interacting]
     Active Substance: LORMETAZEPAM
     Route: 065
  10. PIMOZIDE [Interacting]
     Active Substance: PIMOZIDE
     Indication: Personality disorder
     Route: 065
  11. PIMOZIDE [Interacting]
     Active Substance: PIMOZIDE
     Route: 065
  12. EMPAGLIFLOZIN\METFORMIN HYDROCHLORIDE [Concomitant]
     Active Substance: EMPAGLIFLOZIN\METFORMIN HYDROCHLORIDE
     Indication: Diabetes mellitus
     Route: 065
  13. LIRAGLUTIDE [Concomitant]
     Active Substance: LIRAGLUTIDE
     Indication: Diabetes mellitus
     Route: 065
  14. LIRAGLUTIDE [Concomitant]
     Active Substance: LIRAGLUTIDE
     Route: 065
  15. VALSARTAN [Concomitant]
     Active Substance: VALSARTAN
     Indication: Hypertension
     Route: 065
  16. VALSARTAN [Concomitant]
     Active Substance: VALSARTAN
     Route: 065
  17. MANIDIPINE [Concomitant]
     Active Substance: MANIDIPINE
     Indication: Hypertension
     Route: 065
  18. MANIDIPINE [Concomitant]
     Active Substance: MANIDIPINE
     Route: 065
  19. FUROSEMIDE [Concomitant]
     Active Substance: FUROSEMIDE
     Indication: Hypertension
     Route: 065
  20. FUROSEMIDE [Concomitant]
     Active Substance: FUROSEMIDE
     Route: 065
  21. ATORVASTATIN [Concomitant]
     Active Substance: ATORVASTATIN
     Indication: Hypercholesterolaemia
     Route: 065
  22. ATORVASTATIN [Concomitant]
     Active Substance: ATORVASTATIN
     Route: 065
  23. AMISULPRIDE [Concomitant]
     Active Substance: AMISULPRIDE
     Indication: Personality disorder
     Route: 065
  24. AMISULPRIDE [Concomitant]
     Active Substance: AMISULPRIDE
     Route: 065
  25. VORTIOXETINE [Concomitant]
     Active Substance: VORTIOXETINE
     Indication: Personality disorder
     Route: 065
  26. VORTIOXETINE [Concomitant]
     Active Substance: VORTIOXETINE
     Route: 065
  27. CLOPIDOGREL [Concomitant]
     Active Substance: CLOPIDOGREL BISULFATE
     Indication: Cerebrovascular accident
     Route: 065
  28. CLOPIDOGREL [Concomitant]
     Active Substance: CLOPIDOGREL BISULFATE
     Route: 065
  29. PANTOPRAZOLE [Concomitant]
     Active Substance: PANTOPRAZOLE
     Indication: Gastrooesophageal reflux disease
     Route: 065
  30. PANTOPRAZOLE [Concomitant]
     Active Substance: PANTOPRAZOLE
     Route: 065
  31. CALCIFEDIOL [Concomitant]
     Active Substance: CALCIFEDIOL
     Indication: Vitamin D deficiency
     Route: 065
  32. CALCIFEDIOL [Concomitant]
     Active Substance: CALCIFEDIOL
     Route: 065
  33. ACETAMINOPHEN\TRAMADOL [Concomitant]
     Active Substance: ACETAMINOPHEN\TRAMADOL
     Indication: Arthralgia
     Route: 065
  34. PRAMIPEXOLE [Concomitant]
     Active Substance: PRAMIPEXOLE
     Indication: Tremor
     Route: 065
  35. PRAMIPEXOLE [Concomitant]
     Active Substance: PRAMIPEXOLE
     Route: 065
  36. TRAMADOL [Concomitant]
     Active Substance: TRAMADOL
     Indication: Arthralgia
     Route: 065
  37. TRAMADOL [Concomitant]
     Active Substance: TRAMADOL
     Route: 065
  38. ALBUTEROL [Concomitant]
     Active Substance: ALBUTEROL
     Indication: Chronic obstructive pulmonary disease
     Route: 065
  39. ALBUTEROL [Concomitant]
     Active Substance: ALBUTEROL
     Route: 065
  40. GLYCOPYRRONIUM\INDACATEROL [Concomitant]
     Active Substance: GLYCOPYRRONIUM\INDACATEROL
     Indication: Chronic obstructive pulmonary disease
     Route: 065
  41. METFORMIN [Concomitant]
     Active Substance: METFORMIN HYDROCHLORIDE
     Indication: Diabetes mellitus
     Route: 065
  42. EMPAGLIFLOZIN [Concomitant]
     Active Substance: EMPAGLIFLOZIN
     Indication: Diabetes mellitus
     Route: 065
  43. ACETAMINOPHEN [Concomitant]
     Active Substance: ACETAMINOPHEN
     Indication: Arthralgia
     Route: 065
  44. Indacaterol maleate and glycopyrronium bromide [Concomitant]
     Indication: Chronic obstructive pulmonary disease
     Route: 065

REACTIONS (2)
  - Drug interaction [Recovered/Resolved]
  - Somnolence [Recovered/Resolved]
